FAERS Safety Report 17943035 (Version 2)
Quarter: 2020Q2

REPORT INFORMATION
  Report Type: Spontaneous
  Country: JP (occurrence: JP)
  Receive Date: 20200625
  Receipt Date: 20200629
  Transmission Date: 20200714
  Serious: Yes (Death)
  Sender: FDA-Public Use
  Company Number: NVSJ2020JP006119

PATIENT
  Age: 25 Year
  Sex: Female

DRUGS (3)
  1. NEORAL [Suspect]
     Active Substance: CYCLOSPORINE
     Dosage: TREATED FOR 7 DAYS BEFORE DISCHARGE, AND 3 DAYS A WEEK AFTER DISCHARGE.
     Route: 048
  2. VFEND [Concomitant]
     Active Substance: VORICONAZOLE
     Indication: PRODUCT USED FOR UNKNOWN INDICATION
     Dosage: MORE THAN 3 TIMES
     Route: 065
  3. NEORAL [Suspect]
     Active Substance: CYCLOSPORINE
     Indication: STEM CELL TRANSPLANT
     Dosage: UNK
     Route: 048
     Dates: start: 201907

REACTIONS (1)
  - Leukaemia recurrent [Fatal]
